FAERS Safety Report 19422062 (Version 1)
Quarter: 2021Q2

REPORT INFORMATION
  Report Type: Spontaneous
  Country: US (occurrence: US)
  Receive Date: 20210615
  Receipt Date: 20210615
  Transmission Date: 20210717
  Serious: Yes (Hospitalization)
  Sender: FDA-Public Use
  Company Number: None

PATIENT
  Age: 7 Year
  Sex: Male

DRUGS (12)
  1. ONDANSETRON [Concomitant]
     Active Substance: ONDANSETRON
  2. LORAZEPAM. [Concomitant]
     Active Substance: LORAZEPAM
  3. MIRALAX [Concomitant]
     Active Substance: POLYETHYLENE GLYCOL 3350
  4. BACTRIM [Concomitant]
     Active Substance: SULFAMETHOXAZOLE\TRIMETHOPRIM
  5. CYPROHEPTAD [Concomitant]
  6. TRIAMCINOLON [Concomitant]
  7. VASELINE PURE [Concomitant]
     Active Substance: PETROLATUM
  8. ZIEXTENZO [Suspect]
     Active Substance: PEGFILGRASTIM-BMEZ
     Indication: RENAL CANCER
     Dosage: ?          OTHER STRENGTH: 6MG/0.6LL;?
     Route: 058
     Dates: start: 20010528
  9. DIPHENHYDRAM [Concomitant]
  10. TYLENOL [Concomitant]
     Active Substance: ACETAMINOPHEN
  11. LIDO/PRILOCN [Concomitant]
  12. MORPHINE [Concomitant]
     Active Substance: MORPHINE

REACTIONS (1)
  - Chemotherapy [None]

NARRATIVE: CASE EVENT DATE: 20210614
